FAERS Safety Report 8861218 (Version 4)
Quarter: 2013Q3

REPORT INFORMATION
  Report Type: Report from Study
  Country: JP (occurrence: JP)
  Receive Date: 20121026
  Receipt Date: 20130719
  Transmission Date: 20140515
  Serious: Yes (Disabling, Other)
  Sender: FDA-Public Use
  Company Number: JP-009507513-1207JPN011138

PATIENT
  Age: 47 Year
  Sex: Male
  Weight: 42 kg

DRUGS (15)
  1. PEGINTRON [Suspect]
     Indication: CHRONIC HEPATITIS C
     Dosage: 1.5 MICROGRAM PER KILOGRAM, QW
     Route: 058
     Dates: start: 20120406, end: 20120427
  2. PEGINTRON [Suspect]
     Dosage: 50 MICROGRAM, QW
     Route: 058
     Dates: start: 20120504, end: 20120511
  3. PEGINTRON [Suspect]
     Dosage: 40 MICROGRAM, QW
     Route: 058
     Dates: start: 20120518, end: 20120601
  4. PEGINTRON [Suspect]
     Dosage: 40 MICROGRAM, QW
     Route: 058
     Dates: start: 20120608, end: 20120629
  5. PEGINTRON [Suspect]
     Dosage: 30 MICROGRAM, QW
     Route: 058
     Dates: start: 20120706, end: 20120713
  6. PEGINTRON [Suspect]
     Dosage: 30 MICROGRAM, QW
     Route: 058
     Dates: start: 20120727, end: 20120727
  7. REBETOL [Suspect]
     Indication: CHRONIC HEPATITIS C
     Dosage: 600 MG, QD
     Route: 048
     Dates: start: 20120406, end: 20120501
  8. REBETOL [Suspect]
     Dosage: 400 MG, QD
     Route: 048
     Dates: start: 20120502, end: 20120518
  9. REBETOL [Suspect]
     Dosage: 200 MG, QD
     Route: 048
     Dates: start: 20120518, end: 20120525
  10. TELAVIC [Suspect]
     Indication: CHRONIC HEPATITIS C
     Dosage: 2250 MG, QD
     Route: 048
     Dates: start: 20120406, end: 20120510
  11. TELAVIC [Suspect]
     Dosage: 1500 MG, QD
     Route: 048
     Dates: start: 20120511, end: 20120518
  12. LOXOPROFEN [Suspect]
     Indication: PROPHYLAXIS
     Dosage: 60 MG/DAY, PRN
     Route: 048
     Dates: start: 20120406
  13. HUMALOG [Concomitant]
     Indication: DIABETES MELLITUS
     Dosage: 38 DF, QD
     Route: 058
     Dates: start: 20120222
  14. LANTUS [Concomitant]
     Indication: DIABETES MELLITUS
     Dosage: 13 DF, QD
     Route: 058
     Dates: start: 20120222
  15. LANTUS [Concomitant]
     Dosage: 10 DF, QD, BEFORE SLEEP
     Route: 058
     Dates: start: 20120619

REACTIONS (2)
  - Anaemia [Recovered/Resolved]
  - Retinopathy [Recovered/Resolved]
